FAERS Safety Report 17427693 (Version 1)
Quarter: 2020Q1

REPORT INFORMATION
  Report Type: Spontaneous
  Country: GR (occurrence: GR)
  Receive Date: 20200217
  Receipt Date: 20200217
  Transmission Date: 20200409
  Serious: Yes (Hospitalization, Other)
  Sender: FDA-Public Use
  Company Number: GR-BAYER-2020-025546

PATIENT
  Sex: Female

DRUGS (3)
  1. ULTRAVIST [Suspect]
     Active Substance: IOPROMIDE
  2. ADRENALINE [EPINEPHRINE] [Suspect]
     Active Substance: EPINEPHRINE
  3. ULTRAVIST [Suspect]
     Active Substance: IOPROMIDE
     Dosage: UNK

REACTIONS (3)
  - Dyspnoea [Recovered/Resolved]
  - Dysphonia [Recovered/Resolved]
  - Cough [Recovered/Resolved]
